FAERS Safety Report 19493636 (Version 4)
Quarter: 2021Q3

REPORT INFORMATION
  Report Type: Spontaneous
  Country: US (occurrence: US)
  Receive Date: 20210705
  Receipt Date: 20210810
  Transmission Date: 20211014
  Serious: Yes (Hospitalization, Other)
  Sender: FDA-Public Use
  Company Number: US-PFIZER INC-2021625012

PATIENT
  Age: 64 Year
  Sex: Female

DRUGS (2)
  1. ESTRING [Suspect]
     Active Substance: ESTRADIOL
     Indication: VULVOVAGINAL DRYNESS
  2. ESTRING [Suspect]
     Active Substance: ESTRADIOL
     Indication: URINARY TRACT INFECTION
     Dosage: UNK
     Route: 067

REACTIONS (9)
  - Lipoedema [Unknown]
  - Urinary tract infection [Unknown]
  - Herpes zoster [Unknown]
  - Blood pressure decreased [Unknown]
  - Bladder neoplasm [Unknown]
  - Fungal infection [Unknown]
  - Limb discomfort [Unknown]
  - Drug effective for unapproved indication [Unknown]
  - Off label use [Unknown]
